FAERS Safety Report 9111647 (Version 1)
Quarter: 2013Q1

REPORT INFORMATION
  Report Type: Spontaneous
  Country: US (occurrence: US)
  Receive Date: 20130219
  Receipt Date: 20130219
  Transmission Date: 20140127
  Serious: No
  Sender: FDA-Public Use
  Company Number: US-BRISTOL-MYERS SQUIBB COMPANY-16994626

PATIENT
  Age: 82 Year
  Sex: Female
  Weight: 60.32 kg

DRUGS (1)
  1. ORENCIA [Suspect]
     Indication: RHEUMATOID ARTHRITIS
     Dosage: 17 INFUSIONS.?LAST INFUSION:13SEP2012?REST:13SEP2012.
     Route: 042
     Dates: start: 20110523, end: 20121015

REACTIONS (2)
  - Urinary tract infection [Recovering/Resolving]
  - Hot flush [Recovering/Resolving]
